FAERS Safety Report 21669734 (Version 6)
Quarter: 2023Q2

REPORT INFORMATION
  Report Type: Report from Study
  Country: US (occurrence: US)
  Receive Date: 20221201
  Receipt Date: 20230509
  Transmission Date: 20230722
  Serious: Yes (Other)
  Sender: FDA-Public Use
  Company Number: US-ABBVIE-4191961

PATIENT
  Sex: Male

DRUGS (4)
  1. HUMIRA [Suspect]
     Active Substance: ADALIMUMAB
     Indication: Ankylosing spondylitis
     Dosage: FORM STRENGTH 40 MILLIGRAM
     Route: 058
  2. HUMIRA [Suspect]
     Active Substance: ADALIMUMAB
     Dosage: FORM STRENGTH 40 MILLIGRAM
     Route: 058
  3. HUMIRA [Suspect]
     Active Substance: ADALIMUMAB
     Dosage: FORM STRENGTH 40 MILLIGRAM
     Route: 058
     Dates: start: 20220608
  4. HUMIRA [Suspect]
     Active Substance: ADALIMUMAB
     Route: 058
     Dates: start: 20221007

REACTIONS (16)
  - Glaucoma [Unknown]
  - Arthralgia [Unknown]
  - Back pain [Unknown]
  - Nerve compression [Unknown]
  - Fungal infection [Unknown]
  - Intraocular pressure decreased [Unknown]
  - Device occlusion [Unknown]
  - Skin burning sensation [Unknown]
  - Nerve conduction studies abnormal [Unknown]
  - Memory impairment [Unknown]
  - Therapeutic product effect incomplete [Unknown]
  - Dry eye [Unknown]
  - Diarrhoea [Unknown]
  - Peripheral swelling [Unknown]
  - Food allergy [Unknown]
  - Muscle spasms [Unknown]
